FAERS Safety Report 6558402-3 (Version None)
Quarter: 2010Q1

REPORT INFORMATION
  Report Type: 
  Country: None (occurrence: None)
  Receive Date: 20100128
  Receipt Date: 20100128
  Transmission Date: 20100710
  Serious: No
  Sender: FDA-Public Use
  Company Number: None

PATIENT
  Age: 56 Year
  Weight: 58.0604 kg

DRUGS (2)
  1. LIPITOR [Suspect]
     Indication: BLOOD CHOLESTEROL INCREASED
     Dosage: 1 DAILY
     Dates: start: 20030901, end: 20090905
  2. LIPITOR [Suspect]
     Indication: BLOOD CHOLESTEROL INCREASED
     Dosage: 1 DAILY
     Dates: start: 20100126

REACTIONS (2)
  - BLOOD CHOLESTEROL INCREASED [None]
  - MUSCULAR WEAKNESS [None]
